FAERS Safety Report 11538434 (Version 1)
Quarter: 2015Q3

REPORT INFORMATION
  Report Type: Spontaneous
  Country: DK (occurrence: DK)
  Receive Date: 20150922
  Receipt Date: 20150922
  Transmission Date: 20151125
  Serious: Yes (Hospitalization)
  Sender: FDA-Public Use
  Company Number: DK-BAXALTA-2015BLT001849

PATIENT
  Sex: Male

DRUGS (1)
  1. SUBCUVIA [Suspect]
     Active Substance: HUMAN IMMUNOGLOBULIN G
     Indication: PRODUCT USED FOR UNKNOWN INDICATION
     Dosage: 40 ML, UNK, FIRST TREATMENT
     Route: 058
     Dates: start: 20150918

REACTIONS (4)
  - Hypertension [Unknown]
  - Respiration abnormal [Unknown]
  - Oxygen saturation abnormal [Unknown]
  - Cyanosis [Unknown]

NARRATIVE: CASE EVENT DATE: 20150918
